FAERS Safety Report 4561143-5 (Version None)
Quarter: 2005Q1

REPORT INFORMATION
  Report Type: 
  Country: None (occurrence: None)
  Receive Date: 20050121
  Receipt Date: 20050113
  Transmission Date: 20050727
  Serious: Yes (Hospitalization)
  Sender: FDA-Public Use
  Company Number: K200500050

PATIENT
  Age: 66 Year
  Sex: Female

DRUGS (6)
  1. ALTACE [Suspect]
     Dosage: ORAL
     Route: 048
     Dates: end: 20041030
  2. RISPERDAL [Concomitant]
  3. ATARAX [Concomitant]
  4. POTASSIUM CHLORIDE [Concomitant]
  5. NEURONTIN [Concomitant]
  6. KARDEGIC /FRA/ (ACETYLSALICYLATE LYSINE) [Concomitant]

REACTIONS (8)
  - ABDOMINAL PAIN [None]
  - ANURIA [None]
  - BLOOD SODIUM DECREASED [None]
  - CONFUSIONAL STATE [None]
  - DEHYDRATION [None]
  - DIARRHOEA [None]
  - PROTEINURIA [None]
  - RENAL FAILURE ACUTE [None]
